FAERS Safety Report 13757082 (Version 1)
Quarter: 2017Q3

REPORT INFORMATION
  Report Type: Spontaneous
  Country: GB (occurrence: GB)
  Receive Date: 20170715
  Receipt Date: 20170715
  Transmission Date: 20171127
  Serious: Yes (Other)
  Sender: FDA-Public Use
  Company Number: GB-009507513-1707GBR002650

PATIENT
  Age: 79 Year
  Sex: Male
  Weight: 79.37 kg

DRUGS (6)
  1. CLOPIDOGREL [Concomitant]
     Active Substance: CLOPIDOGREL BISULFATE
     Indication: PRODUCT USED FOR UNKNOWN INDICATION
     Dosage: UNK
     Route: 065
  2. EZETIMIBE. [Concomitant]
     Active Substance: EZETIMIBE
     Indication: PRODUCT USED FOR UNKNOWN INDICATION
     Route: 065
  3. CRESTOR [Concomitant]
     Active Substance: ROSUVASTATIN CALCIUM
     Indication: PRODUCT USED FOR UNKNOWN INDICATION
     Dosage: UNK
     Route: 065
  4. DEXAMETHASONE. [Suspect]
     Active Substance: DEXAMETHASONE
     Indication: PROSTATE CANCER
     Dosage: STARTED IN LATE 2015 OR EARLY 2016. (500 MCG,1 IN 2 D)
     Route: 048
     Dates: start: 2015
  5. HORMONES (UNSPECIFIED) [Concomitant]
     Active Substance: UNSPECIFIED INGREDIENT
     Indication: PRODUCT USED FOR UNKNOWN INDICATION
     Dosage: 1 DOSAGE FORMS, 1 IN 3 M
     Dates: start: 2014
  6. GLICLAZIDE [Concomitant]
     Active Substance: GLICLAZIDE
     Indication: PRODUCT USED FOR UNKNOWN INDICATION
     Dosage: UNK
     Route: 065

REACTIONS (10)
  - Thirst [Unknown]
  - Type 2 diabetes mellitus [Recovering/Resolving]
  - Feeling drunk [Unknown]
  - Fatigue [Unknown]
  - Mood swings [Unknown]
  - Anger [Unknown]
  - Emotional disorder [Unknown]
  - Hypoglycaemia [Unknown]
  - Balance disorder [Unknown]
  - Aggression [Unknown]

NARRATIVE: CASE EVENT DATE: 201605
